FAERS Safety Report 9685161 (Version 2)
Quarter: 2014Q1

REPORT INFORMATION
  Report Type: Spontaneous
  Country: US (occurrence: US)
  Receive Date: 20131113
  Receipt Date: 20140115
  Transmission Date: 20141002
  Serious: Yes (Disabling)
  Sender: FDA-Public Use
  Company Number: US-MERCK-1311USA001722

PATIENT
  Sex: Female

DRUGS (1)
  1. PEGINTRON [Suspect]
     Indication: HEPATITIS C
     Dosage: UNK
     Route: 058
     Dates: start: 2006, end: 2007

REACTIONS (11)
  - Arthropathy [Recovered/Resolved]
  - Impaired work ability [Recovered/Resolved]
  - Hepatitis C [Unknown]
  - Muscle disorder [Recovered/Resolved]
  - Scar [Recovered/Resolved]
  - Scab [Recovered/Resolved]
  - Alopecia [Recovered/Resolved]
  - Arthropathy [Recovered/Resolved]
  - Injection site rash [Recovered/Resolved]
  - Cough [Recovered/Resolved]
  - Rash [Recovered/Resolved]
